FAERS Safety Report 12293356 (Version 2)
Quarter: 2016Q2

REPORT INFORMATION
  Report Type: Spontaneous
  Country: US (occurrence: US)
  Receive Date: 20160421
  Receipt Date: 20160428
  Transmission Date: 20160815
  Serious: Yes (Other)
  Sender: FDA-Public Use
  Company Number: US-TEVA-653102USA

PATIENT
  Age: 45 Year
  Sex: Female

DRUGS (2)
  1. ZECUITY [Suspect]
     Active Substance: SUMATRIPTAN SUCCINATE
     Route: 062
     Dates: start: 20160413, end: 20160413
  2. ZECUITY [Suspect]
     Active Substance: SUMATRIPTAN SUCCINATE
     Indication: MIGRAINE
     Route: 062
     Dates: start: 20160324, end: 20160324

REACTIONS (8)
  - Product physical issue [Unknown]
  - Application site dryness [Unknown]
  - Application site erythema [Unknown]
  - Application site pruritus [Unknown]
  - Drug effect incomplete [Unknown]
  - Application site swelling [Unknown]
  - Application site discolouration [Unknown]
  - Application site burn [Unknown]

NARRATIVE: CASE EVENT DATE: 201604
